FAERS Safety Report 4217510 (Version 5)
Quarter: 2014Q1

REPORT INFORMATION
  Report Type: Spontaneous
  Country: US (occurrence: US)
  Receive Date: 20040914
  Receipt Date: 20140219
  Transmission Date: 20141002
  Serious: Yes (Hospitalization, Other)
  Sender: FDA-Public Use
  Company Number: 203804

PATIENT
  Age: 45 Year
  Sex: Female

DRUGS (3)
  1. AVONEX [Suspect]
     Indication: MULTIPLE SCLEROSIS
     Route: 030
     Dates: start: 19990611, end: 200310
  2. AVONEX [Suspect]
     Indication: MULTIPLE SCLEROSIS
     Route: 030
     Dates: end: 20070508
  3. AVONEX [Suspect]
     Indication: MULTIPLE SCLEROSIS
     Route: 030
     Dates: start: 20070916, end: 20100501

REACTIONS (8)
  - Knee operation [Unknown]
  - Uterine leiomyoma [Recovered/Resolved]
  - Blood pressure increased [Recovered/Resolved]
  - Postoperative wound complication [Unknown]
  - Heart rate increased [Recovered/Resolved]
  - Goitre [Not Recovered/Not Resolved]
  - Thyroid neoplasm [Not Recovered/Not Resolved]
  - Incontinence [Not Recovered/Not Resolved]
